FAERS Safety Report 19771689 (Version 1)
Quarter: 2021Q3

REPORT INFORMATION
  Report Type: Report from Study
  Country: IT (occurrence: IT)
  Receive Date: 20210831
  Receipt Date: 20210831
  Transmission Date: 20211014
  Serious: Yes (Death, Hospitalization)
  Sender: FDA-Public Use
  Company Number: IT-ROCHE-2898004

PATIENT
  Age: 68 Year
  Sex: Male

DRUGS (4)
  1. BEVACIZUMAB. [Suspect]
     Active Substance: BEVACIZUMAB
     Indication: SMALL CELL LUNG CANCER
     Dosage: DATE OF LAST DOSE(450 MG/KG) ADMINISTERED BEFORE SAE:31/MAY/2021
     Route: 042
     Dates: start: 20210510
  2. CARBOPLATIN. [Suspect]
     Active Substance: CARBOPLATIN
     Indication: SMALL CELL LUNG CANCER
     Dosage: DATE OF LAST DOSE(530 AUC*5) ADMINISTERED BEFORE SAE:21/JUN/2021
     Route: 042
     Dates: start: 20210510
  3. ATEZOLIZUMAB. [Suspect]
     Active Substance: ATEZOLIZUMAB
     Indication: SMALL CELL LUNG CANCER
     Dosage: DATE OF LAST DOSE(1200MG) ADMINISTERED BEFORE SAE:21/JUN/2021
     Route: 041
     Dates: start: 20210510
  4. ETOPOSIDE. [Suspect]
     Active Substance: ETOPOSIDE
     Indication: SMALL CELL LUNG CANCER
     Dosage: DATE OF LAST DOSE(76 MG/SQM) ADMINISTERED BEFORE SAE:23/JUN/2021
     Route: 042

REACTIONS (2)
  - Sepsis [Fatal]
  - Febrile neutropenia [Fatal]

NARRATIVE: CASE EVENT DATE: 20210627
